FAERS Safety Report 16999430 (Version 6)
Quarter: 2020Q1

REPORT INFORMATION
  Report Type: Spontaneous
  Country: US (occurrence: US)
  Receive Date: 20191106
  Receipt Date: 20200117
  Transmission Date: 20200409
  Serious: No
  Sender: FDA-Public Use
  Company Number: US-PFIZER INC-2019478401

PATIENT
  Age: 76 Year
  Sex: Female

DRUGS (1)
  1. PREGABALIN. [Suspect]
     Active Substance: PREGABALIN
     Indication: NEUROPATHY PERIPHERAL
     Dosage: 150 MG, 3X/DAY
     Route: 048
     Dates: start: 20191104, end: 20191121

REACTIONS (5)
  - Pruritus [Unknown]
  - Therapeutic response unexpected [Unknown]
  - Somnolence [Unknown]
  - Fatigue [Unknown]
  - Formication [Unknown]

NARRATIVE: CASE EVENT DATE: 2019
